FAERS Safety Report 5627673-X (Version None)
Quarter: 2008Q1

REPORT INFORMATION
  Report Type: 
  Country: None (occurrence: None)
  Receive Date: 20080214
  Receipt Date: 20080214
  Transmission Date: 20080703
  Serious: Yes (Life-Threatening)
  Sender: FDA-Public Use
  Company Number: None

PATIENT
  Age: 48 Year
  Sex: Female
  Weight: 71.6683 kg

DRUGS (1)
  1. CHANTIX [Suspect]
     Indication: SMOKING CESSATION THERAPY
     Dosage: 1 MG TABLET   2X PER DAY
     Dates: start: 20071226, end: 20080118

REACTIONS (3)
  - DEPRESSION [None]
  - HALLUCINATION, AUDITORY [None]
  - SUICIDAL IDEATION [None]
